FAERS Safety Report 6774321-1 (Version None)
Quarter: 2010Q2

REPORT INFORMATION
  Report Type: 
  Country: None (occurrence: None)
  Receive Date: 20100520
  Receipt Date: 20090625
  Transmission Date: 20101027
  Serious: Yes (Other)
  Sender: FDA-Public Use
  Company Number: 2008059000

PATIENT
  Age: 51 Year
  Sex: Female

DRUGS (6)
  1. PROVERA [Suspect]
     Indication: HORMONE REPLACEMENT THERAPY
     Dosage: 0.5 MG ORAL; 5 MG; 2.5 MG
     Route: 048
     Dates: start: 19900101, end: 19920101
  2. PROVERA [Suspect]
     Indication: HORMONE REPLACEMENT THERAPY
     Dosage: 0.5 MG ORAL; 5 MG; 2.5 MG
     Route: 048
     Dates: start: 19920101, end: 19920101
  3. PROVERA [Suspect]
     Indication: HORMONE REPLACEMENT THERAPY
     Dosage: 0.5 MG ORAL; 5 MG; 2.5 MG
     Route: 048
     Dates: start: 19930101, end: 19950101
  4. PREMARIN [Suspect]
     Indication: HORMONE REPLACEMENT THERAPY
     Dosage: 0.625 MG,
     Dates: start: 19900101, end: 19950101
  5. EVISTA [Concomitant]
  6. LEVOTHYROXINE SODIUM [Concomitant]

REACTIONS (1)
  - BREAST CANCER FEMALE [None]
